FAERS Safety Report 9162763 (Version 1)
Quarter: 2013Q1

REPORT INFORMATION
  Report Type: Spontaneous
  Country: US (occurrence: None)
  Receive Date: 20130227
  Receipt Date: 20130227
  Transmission Date: 20140127
  Serious: Yes (Hospitalization)
  Sender: FDA-Public Use
  Company Number: KV201300036

PATIENT
  Age: 34 Year
  Sex: Female

DRUGS (2)
  1. MAKENA [Suspect]
     Indication: PREMATURE DELIVERY
     Route: 030
     Dates: start: 201211, end: 201301
  2. MAKENA [Suspect]
     Route: 030
     Dates: start: 201211, end: 201301

REACTIONS (3)
  - Postpartum haemorrhage [None]
  - Caesarean section [None]
  - Maternal exposure during pregnancy [None]
